FAERS Safety Report 20866292 (Version 1)
Quarter: 2022Q2

REPORT INFORMATION
  Report Type: Spontaneous
  Country: US (occurrence: None)
  Receive Date: 20220523
  Receipt Date: 20220523
  Transmission Date: 20220721
  Serious: No
  Sender: FDA-Public Use
  Company Number: None

PATIENT
  Age: 75 Year
  Sex: Male

DRUGS (1)
  1. PROCRIT [Suspect]
     Active Substance: ERYTHROPOIETIN
     Dosage: OTHER STRENGTH : 20,000U/ML;?
     Route: 058
     Dates: start: 202201, end: 202205

REACTIONS (1)
  - Death [None]

NARRATIVE: CASE EVENT DATE: 20220523
